FAERS Safety Report 18457393 (Version 1)
Quarter: 2020Q4

REPORT INFORMATION
  Report Type: Spontaneous
  Country: PF (occurrence: PF)
  Receive Date: 20201103
  Receipt Date: 20201103
  Transmission Date: 20210114
  Serious: Yes (Other)
  Sender: FDA-Public Use
  Company Number: PF-JNJFOC-20201021408

PATIENT
  Sex: Female

DRUGS (2)
  1. STELARA [Suspect]
     Active Substance: USTEKINUMAB
  2. STELARA [Suspect]
     Active Substance: USTEKINUMAB
     Indication: PSORIASIS
     Dosage: INJECTION OF WEEK 0 AND WEEK 4 ADMINISTERED
     Route: 058

REACTIONS (1)
  - Toxic skin eruption [Not Recovered/Not Resolved]
